FAERS Safety Report 6263462-3 (Version None)
Quarter: 2009Q3

REPORT INFORMATION
  Report Type: 
  Country: None (occurrence: None)
  Receive Date: 20090710
  Receipt Date: 20090526
  Transmission Date: 20100115
  Serious: No
  Sender: FDA-Public Use
  Company Number: A0775642A

PATIENT
  Age: 74 Year
  Sex: Female

DRUGS (5)
  1. FLOVENT [Suspect]
     Indication: ASTHMA
     Route: 055
     Dates: start: 20040101
  2. SPIRIVA [Concomitant]
  3. METOPROLOL [Concomitant]
  4. PRINIVIL [Concomitant]
  5. SIMVASTATIN [Concomitant]

REACTIONS (4)
  - DRUG INEFFECTIVE [None]
  - INCREASED UPPER AIRWAY SECRETION [None]
  - PRODUCT QUALITY ISSUE [None]
  - RESPIRATORY TRACT CONGESTION [None]
